FAERS Safety Report 16713185 (Version 1)
Quarter: 2019Q3

REPORT INFORMATION
  Report Type: Spontaneous
  Country: US (occurrence: US)
  Receive Date: 20190817
  Receipt Date: 20190817
  Transmission Date: 20191004
  Serious: No
  Sender: FDA-Public Use
  Company Number: US-AMGEN-USASP2019127956

PATIENT
  Age: 66 Year
  Sex: Female

DRUGS (2)
  1. SENSIPAR [Suspect]
     Active Substance: CINACALCET HYDROCHLORIDE
     Indication: HYPERPARATHYROIDISM PRIMARY
     Dosage: 30 MILLIGRAM, QD
     Route: 065
     Dates: start: 2019, end: 2019
  2. SENSIPAR [Suspect]
     Active Substance: CINACALCET HYDROCHLORIDE
     Dosage: 30 MILLIGRAM, 3 TIMES/WK
     Route: 065
     Dates: start: 2019

REACTIONS (5)
  - Decreased appetite [Unknown]
  - Off label use [Unknown]
  - Gastrointestinal disorder [Unknown]
  - Nausea [Unknown]
  - Weight decreased [Unknown]
